FAERS Safety Report 4369809-7 (Version None)
Quarter: 2004Q2

REPORT INFORMATION
  Report Type: 
  Country: None (occurrence: None)
  Receive Date: 20040527
  Receipt Date: 20040504
  Transmission Date: 20050107
  Serious: Yes (Disabling)
  Sender: FDA-Public Use
  Company Number: 2004034397

PATIENT
  Age: 30 Year
  Sex: Male

DRUGS (1)
  1. NICORETTE [Suspect]
     Dosage: UNSPECIFIED AMT. 6 X DAILY THEN QID, INHALATION
     Route: 055
     Dates: start: 20040101, end: 20040316

REACTIONS (3)
  - SINUSITIS [None]
  - VISION BLURRED [None]
  - VISUAL ACUITY REDUCED [None]
